FAERS Safety Report 18716628 (Version 1)
Quarter: 2021Q1

REPORT INFORMATION
  Report Type: Spontaneous
  Country: US (occurrence: US)
  Receive Date: 20210107
  Receipt Date: 20210107
  Transmission Date: 20210419
  Serious: No
  Sender: FDA-Public Use
  Company Number: None

PATIENT
  Age: 70 Year
  Sex: Male

DRUGS (1)
  1. LIRAGLUTIDE (LIRAGLUTIDE 6MG/ML INJ, SOLN, PEN, 3ML [Suspect]
     Active Substance: LIRAGLUTIDE
     Indication: DIABETES MELLITUS
     Route: 058
     Dates: start: 20190409, end: 20191201

REACTIONS (2)
  - Bile duct stone [None]
  - Pancreatitis [None]

NARRATIVE: CASE EVENT DATE: 20191112
